FAERS Safety Report 8992082 (Version 1)
Quarter: 2012Q4

REPORT INFORMATION
  Report Type: Report from Study
  Country: US (occurrence: US)
  Receive Date: 20121231
  Receipt Date: 20121231
  Transmission Date: 20130627
  Serious: Yes (Other)
  Sender: FDA-Public Use
  Company Number: US-ABBOTT-12P-163-1026450-00

PATIENT
  Sex: Female

DRUGS (4)
  1. HUMIRA [Suspect]
     Indication: CROHN^S DISEASE
     Route: 058
     Dates: start: 201209
  2. DEPAKOTE [Suspect]
     Indication: CONVULSION
     Dates: start: 201211
  3. XANAX [Concomitant]
     Indication: ANXIETY
     Dosage: 0.25 mg
     Dates: start: 2010
  4. HYDROCODONE [Concomitant]
     Indication: BACK DISORDER
     Dosage: 7.5 mg

REACTIONS (5)
  - Convulsion [Not Recovered/Not Resolved]
  - Rhinorrhoea [Not Recovered/Not Resolved]
  - Pyrexia [Recovered/Resolved]
  - Headache [Not Recovered/Not Resolved]
  - Nasopharyngitis [Not Recovered/Not Resolved]
